FAERS Safety Report 13383005 (Version 1)
Quarter: 2017Q1

REPORT INFORMATION
  Report Type: Report from Study
  Country: IL (occurrence: IL)
  Receive Date: 20170329
  Receipt Date: 20170329
  Transmission Date: 20170429
  Serious: Yes (Other)
  Sender: FDA-Public Use
  Company Number: IL-INCYTE CORPORATION-2017IN002109

PATIENT
  Sex: Female

DRUGS (3)
  1. JAKAVI [Suspect]
     Active Substance: RUXOLITINIB
     Dosage: 10 MG, QD
     Route: 048
  2. JAKAVI [Suspect]
     Active Substance: RUXOLITINIB
     Indication: POLYCYTHAEMIA VERA
     Dosage: 20 MG, UNK
     Route: 048
     Dates: start: 2015
  3. JAKAVI [Suspect]
     Active Substance: RUXOLITINIB
     Dosage: 10 MG, BID
     Route: 048

REACTIONS (5)
  - Haemoglobin decreased [Recovering/Resolving]
  - Hyperkalaemia [Recovering/Resolving]
  - Insomnia [Not Recovered/Not Resolved]
  - Wound [Recovered/Resolved]
  - Splenomegaly [Unknown]
